FAERS Safety Report 23282654 (Version 1)
Quarter: 2023Q4

REPORT INFORMATION
  Report Type: Report from Study
  Country: PL (occurrence: PL)
  Receive Date: 20231211
  Receipt Date: 20231211
  Transmission Date: 20240110
  Serious: Yes (Other)
  Sender: FDA-Public Use
  Company Number: PL-002147023-NVSC2022PL285667

PATIENT
  Sex: Female

DRUGS (5)
  1. SCEMBLIX [Suspect]
     Active Substance: ASCIMINIB HYDROCHLORIDE
     Indication: Chronic myeloid leukaemia
     Dosage: 2X40 MG PER DAY
     Route: 065
     Dates: start: 20211214, end: 20220419
  2. SCEMBLIX [Suspect]
     Active Substance: ASCIMINIB HYDROCHLORIDE
     Dosage: 2X40 MG PER DAY
     Route: 065
     Dates: start: 20220517, end: 20220621
  3. SCEMBLIX [Suspect]
     Active Substance: ASCIMINIB HYDROCHLORIDE
     Dosage: 1X40 MG PER DAY
     Route: 065
     Dates: start: 20220622
  4. TASIGNA [Suspect]
     Active Substance: NILOTINIB
     Indication: Product used for unknown indication
     Dosage: 200 MG, BID
     Route: 065
     Dates: start: 20210824, end: 20211015
  5. IMATINIB MESYLATE [Suspect]
     Active Substance: IMATINIB MESYLATE
     Indication: Chronic myeloid leukaemia
     Dosage: 400 MG, QD
     Route: 065
     Dates: start: 20220622

REACTIONS (8)
  - Endometrial cancer metastatic [Unknown]
  - Second primary malignancy [Unknown]
  - Cytopenia [Unknown]
  - Ichthyosis [Unknown]
  - Dry skin [Unknown]
  - Skin hypertrophy [Unknown]
  - Skin lesion [Unknown]
  - Drug intolerance [Unknown]

NARRATIVE: CASE EVENT DATE: 20220801
